FAERS Safety Report 8908224 (Version 3)
Quarter: 2012Q4

REPORT INFORMATION
  Report Type: 
  Country: US (occurrence: US)
  Receive Date: 20121114
  Receipt Date: 20121228
  Transmission Date: 20130627
  Serious: Yes (Hospitalization)
  Sender: FDA-Public Use
  Company Number: PHHO2012US016249

PATIENT
  Age: 68 Year
  Sex: Female
  Weight: 89.8 kg

DRUGS (4)
  1. AFINITOR [Suspect]
     Indication: METASTATIC RENAL CELL CARCINOMA
     Dosage: 10 mg, UNK
     Route: 048
     Dates: start: 20121105, end: 20121203
  2. ZOMETA [Suspect]
     Dates: start: 20091125
  3. SUTENT [Suspect]
     Indication: METASTATIC RENAL CELL CARCINOMA
     Dosage: 50 mg, QD (28 days then 2 weeks off)
     Route: 048
     Dates: start: 20091209, end: 20120429
  4. XGEVA [Suspect]
     Dosage: UNK
     Dates: end: 20111026

REACTIONS (2)
  - Muscular weakness [Unknown]
  - Abscess oral [Not Recovered/Not Resolved]
